FAERS Safety Report 13557278 (Version 2)
Quarter: 2017Q2

REPORT INFORMATION
  Report Type: Spontaneous
  Country: TN (occurrence: TN)
  Receive Date: 20170517
  Receipt Date: 20170531
  Transmission Date: 20170830
  Serious: Yes (Life-Threatening, Hospitalization)
  Sender: FDA-Public Use
  Company Number: TN-ABBVIE-17P-160-1978837-00

PATIENT

DRUGS (2)
  1. PHENOBARBITAL. [Suspect]
     Active Substance: PHENOBARBITAL
     Indication: PRODUCT USED FOR UNKNOWN INDICATION
     Route: 048
  2. VALPROIC ACID. [Suspect]
     Active Substance: VALPROIC ACID
     Indication: PRODUCT USED FOR UNKNOWN INDICATION
     Dosage: EXTENDED RELEASE
     Route: 065

REACTIONS (5)
  - Oedema [Recovered/Resolved]
  - Erythema [Recovered/Resolved]
  - Stevens-Johnson syndrome [Recovered/Resolved]
  - Skin irritation [Recovered/Resolved]
  - Blister [Recovered/Resolved]
